FAERS Safety Report 8998118 (Version 1)
Quarter: 2013Q1

REPORT INFORMATION
  Report Type: Spontaneous
  Country: FR (occurrence: FR)
  Receive Date: 20130104
  Receipt Date: 20130104
  Transmission Date: 20140127
  Serious: Yes (Other)
  Sender: FDA-Public Use
  Company Number: FR-UCBSA-074227

PATIENT
  Sex: Male

DRUGS (4)
  1. KEPPRA [Suspect]
     Indication: CONVULSION
     Dosage: 1 TAB IN THE EVENING
     Route: 048
     Dates: start: 201212
  2. CORTISONE [Concomitant]
     Indication: BRAIN NEOPLASM
     Dosage: UNKNOWN DOSE
     Route: 048
  3. INEXIUM [Concomitant]
     Dosage: UNKNOWN DOSE
     Route: 048
  4. DAFALGAN [Concomitant]
     Dosage: UNKNOWN DOSE
     Route: 048

REACTIONS (6)
  - Fall [Recovered/Resolved]
  - Loss of consciousness [Recovered/Resolved]
  - Vertigo [Not Recovered/Not Resolved]
  - Vomiting [Not Recovered/Not Resolved]
  - Diplopia [Not Recovered/Not Resolved]
  - Headache [Not Recovered/Not Resolved]
